FAERS Safety Report 8354530 (Version 4)
Quarter: 2014Q2

REPORT INFORMATION
  Report Type: Spontaneous
  Country: US (occurrence: US)
  Receive Date: 20120125
  Receipt Date: 20140624
  Transmission Date: 20141212
  Serious: Yes (Hospitalization, Other)
  Sender: FDA-Public Use
  Company Number: US-US-EMD SERONO, INC.-7108059

PATIENT
  Age: 39 Year
  Sex: Female
  Weight: 61 kg

DRUGS (8)
  1. REBIF [Suspect]
     Indication: MULTIPLE SCLEROSIS
     Route: 058
     Dates: start: 20070601
  2. PREDNISONE [Suspect]
     Indication: RESPIRATORY DISORDER
     Dates: start: 201110, end: 201110
  3. RELPAX [Concomitant]
     Indication: MIGRAINE
     Dosage: 40 UNSPECIFIED UNITS
  4. TOPAMAX [Concomitant]
     Indication: MIGRAINE
     Dosage: UNIT DOSE 50 UNSPECIFIED UNITS
  5. SEASONALE [Concomitant]
     Indication: PRODUCT USED FOR UNKNOWN INDICATION
     Dosage: 0.15/30
  6. VITAMIN D [Concomitant]
     Indication: PRODUCT USED FOR UNKNOWN INDICATION
  7. CITRACAL [Concomitant]
     Indication: PRODUCT USED FOR UNKNOWN INDICATION
  8. MULTIVITAMIN [Concomitant]
     Indication: PRODUCT USED FOR UNKNOWN INDICATION

REACTIONS (7)
  - Osteonecrosis [Recovered/Resolved]
  - Radiculopathy [Not Recovered/Not Resolved]
  - Lumbosacral plexus lesion [Not Recovered/Not Resolved]
  - Respiratory disorder [Unknown]
  - Injection site erythema [Unknown]
  - Injection site pruritus [Unknown]
  - Injection site pain [Not Recovered/Not Resolved]
